FAERS Safety Report 10024980 (Version 2)
Quarter: 2014Q1

REPORT INFORMATION
  Report Type: Report from Study
  Country: US (occurrence: US)
  Receive Date: 20140320
  Receipt Date: 20140325
  Transmission Date: 20141002
  Serious: Yes (Hospitalization, Other)
  Sender: FDA-Public Use
  Company Number: US-BAYER-2014-038556

PATIENT
  Age: 57 Year
  Sex: Male

DRUGS (12)
  1. BETASERON [Suspect]
     Indication: SECONDARY PROGRESSIVE MULTIPLE SCLEROSIS
     Dosage: 8 MIU, QOD
     Route: 058
     Dates: start: 20070916
  2. LISINOPRIL [Concomitant]
  3. GABAPENTIN [Concomitant]
  4. AMBIEN [Concomitant]
  5. METOPROLOL [Concomitant]
  6. BACLOFEN [Concomitant]
  7. MAGNESIUM OXIDE [Concomitant]
  8. TICAGRELOR [Concomitant]
  9. CLONAZEPAM [Concomitant]
  10. ASPIRIN [Concomitant]
     Dosage: 81 MG, UNK
  11. CRESTOR [Concomitant]
  12. MECLIZINE [Concomitant]

REACTIONS (8)
  - Cardiac failure congestive [Recovered/Resolved]
  - Multiple sclerosis relapse [Recovered/Resolved]
  - Optic neuritis [Recovered/Resolved]
  - Eye pain [Recovered/Resolved]
  - Optic neuritis [Recovered/Resolved]
  - Eye pain [Recovered/Resolved]
  - Drug dose omission [Recovered/Resolved]
  - Expired drug administered [None]
